FAERS Safety Report 5333967-8 (Version None)
Quarter: 2007Q2

REPORT INFORMATION
  Report Type: 
  Country: None (occurrence: None)
  Receive Date: 20070524
  Receipt Date: 20070514
  Transmission Date: 20071010
  Serious: Yes (Other)
  Sender: FDA-Public Use
  Company Number: US-PFIZER INC-2007028677

PATIENT
  Sex: Male
  Weight: 68.9 kg

DRUGS (3)
  1. VIAGRA [Suspect]
     Indication: ERECTILE DYSFUNCTION
     Dates: start: 20070301, end: 20070501
  2. LEVITRA [Suspect]
  3. LISINOPRIL [Concomitant]

REACTIONS (7)
  - BLOOD GLUCOSE INCREASED [None]
  - DRUG INEFFECTIVE [None]
  - FLUSHING [None]
  - HEADACHE [None]
  - INCORRECT DOSE ADMINISTERED [None]
  - LOW DENSITY LIPOPROTEIN INCREASED [None]
  - NASAL CONGESTION [None]
